FAERS Safety Report 8163657-8 (Version None)
Quarter: 2012Q1

REPORT INFORMATION
  Report Type: 
  Country: None (occurrence: None)
  Receive Date: 20120224
  Receipt Date: 20120215
  Transmission Date: 20120608
  Serious: Yes (Death, Hospitalization)
  Sender: FDA-Public Use
  Company Number: JP-AMGEN-KDC443096

PATIENT
  Age: 74 Year
  Sex: Male
  Weight: 62 kg

DRUGS (13)
  1. FAMOTIDINE [Concomitant]
     Indication: GASTRIC ULCER
     Route: 048
  2. ASPIRIN [Concomitant]
     Route: 048
  3. PLAVIX [Concomitant]
     Route: 048
  4. LASIX [Concomitant]
  5. GASMOTIN [Concomitant]
     Indication: GASTRITIS
     Route: 048
  6. NORVASC [Concomitant]
     Route: 048
  7. LIVALO [Concomitant]
     Route: 048
  8. FENTANYL-100 [Concomitant]
     Dosage: UNK UNK, UNK
     Route: 062
  9. MUCOSTA [Concomitant]
     Indication: GASTRIC ULCER
     Route: 048
  10. NIKORANMART [Concomitant]
     Indication: ANGINA PECTORIS
     Dosage: UNK
     Route: 048
  11. DIOVAN [Concomitant]
     Route: 048
  12. PANITUMUMAB [Suspect]
     Indication: COLORECTAL CANCER
     Dosage: 6 MG/KG, Q2WK
     Route: 041
     Dates: start: 20100729, end: 20100909
  13. MECOBALAMIN [Concomitant]
     Indication: NEUROPATHY PERIPHERAL
     Dosage: UNK UNK, UNK
     Route: 048

REACTIONS (6)
  - DERMATITIS [None]
  - PARONYCHIA [None]
  - VERTIGO [None]
  - TREMOR [None]
  - CHILLS [None]
  - DEATH [None]
